FAERS Safety Report 5272371-8 (Version None)
Quarter: 2007Q1

REPORT INFORMATION
  Report Type: 
  Country: None (occurrence: None)
  Receive Date: 20070320
  Receipt Date: 20070320
  Transmission Date: 20070707
  Serious: Yes (Life-Threatening, Hospitalization, Other)
  Sender: FDA-Public Use
  Company Number: None

PATIENT
  Age: 58 Year
  Sex: Male
  Weight: 73.0291 kg

DRUGS (4)
  1. REMICADE [Suspect]
     Indication: ARTHRITIS
     Dosage: 100 MG EVERY 6 WEEKS IV DRIP
     Route: 041
     Dates: start: 20020501, end: 20030701
  2. HUMIRA [Suspect]
     Indication: ARTHRITIS
     Dosage: EVERY 2 WEEKS INTRA-ARTICULAR
     Route: 014
     Dates: start: 20031101, end: 20051201
  3. REMICADE [Concomitant]
  4. HUMIRA [Concomitant]

REACTIONS (1)
  - LYMPHOMA [None]
